FAERS Safety Report 9893989 (Version 2)
Quarter: 2014Q1

REPORT INFORMATION
  Report Type: Spontaneous
  Country: US (occurrence: US)
  Receive Date: 20140213
  Receipt Date: 20140303
  Transmission Date: 20141002
  Serious: No
  Sender: FDA-Public Use
  Company Number: US-PFIZER INC-2014039208

PATIENT
  Sex: Female

DRUGS (18)
  1. CARDIZEM [Suspect]
     Dosage: UNK
  2. METHOTREXATE SODIUM [Suspect]
     Indication: RHEUMATOID ARTHRITIS
     Dosage: UNK
     Dates: start: 2011, end: 201401
  3. METOPROLOL TARTRATE [Suspect]
     Dosage: UNK
  4. MORPHINE SULFATE [Suspect]
     Dosage: UNK
  5. BENICAR [Suspect]
     Dosage: UNK
  6. DICLOFENAC EPOLAMINE [Suspect]
     Dosage: UNK
  7. HUMIRA [Suspect]
     Dosage: UNK
  8. TALC [Suspect]
     Dosage: UNK
  9. VOLTAREN [Suspect]
     Dosage: UNK
  10. ALLEGRA [Suspect]
     Dosage: UNK
  11. REMICADE [Suspect]
     Dosage: UNK
  12. KINERET [Suspect]
     Dosage: UNK
  13. ASA [Suspect]
     Dosage: UNK
  14. CLONIDINE [Suspect]
     Dosage: UNK
  15. RITUXAN [Suspect]
     Dosage: UNK
  16. MANTOUX [Suspect]
     Dosage: UNK
  17. ADALIMUMAB [Suspect]
     Dosage: UNK
  18. TYLENOL [Suspect]
     Dosage: UNK

REACTIONS (1)
  - Drug hypersensitivity [Unknown]
